FAERS Safety Report 23948925 (Version 2)
Quarter: 2024Q2

REPORT INFORMATION
  Report Type: Spontaneous
  Country: TW (occurrence: TW)
  Receive Date: 20240607
  Receipt Date: 20240621
  Transmission Date: 20240716
  Serious: Yes (Hospitalization)
  Sender: FDA-Public Use
  Company Number: TW-PFIZER INC-PV202400033804

PATIENT
  Age: 68 Year
  Sex: Female
  Weight: 60 kg

DRUGS (22)
  1. ZOLEDRONIC ACID [Suspect]
     Active Substance: ZOLEDRONIC ACID
     Indication: Metastases to lung
     Dates: start: 2021
  2. ROSUVASTATIN [Concomitant]
     Active Substance: ROSUVASTATIN
  3. FULVESTRANT [Concomitant]
     Active Substance: FULVESTRANT
     Indication: Metastases to lung
     Dates: start: 20200401
  4. PALBOCICLIB [Suspect]
     Active Substance: PALBOCICLIB
     Indication: Metastases to breast
     Route: 048
     Dates: start: 20200401
  5. PALBOCICLIB [Suspect]
     Active Substance: PALBOCICLIB
     Indication: Hormone receptor negative HER2 positive breast cancer
     Dates: start: 20200401
  6. FULVESTRANT [Concomitant]
     Active Substance: FULVESTRANT
     Indication: Metastases to bone
     Dates: start: 20200401
  7. FULVESTRANT [Concomitant]
     Active Substance: FULVESTRANT
     Indication: Metastases to breast
     Dates: start: 20200401
  8. FULVESTRANT [Concomitant]
     Active Substance: FULVESTRANT
     Indication: Metastases to lymph nodes
     Dates: start: 20200401
  9. FULVESTRANT [Concomitant]
     Active Substance: FULVESTRANT
     Indication: Metastases to the mediastinum
     Dates: start: 20200401
  10. ZOLEDRONIC ACID [Suspect]
     Active Substance: ZOLEDRONIC ACID
     Indication: Metastases to bone
     Dates: start: 2021
  11. ZOLEDRONIC ACID [Suspect]
     Active Substance: ZOLEDRONIC ACID
     Indication: Invasive ductal breast carcinoma
     Dates: start: 2021
  12. ZOLEDRONIC ACID [Suspect]
     Active Substance: ZOLEDRONIC ACID
     Indication: Metastases to the mediastinum
     Dates: start: 2021
  13. ZOLEDRONIC ACID [Suspect]
     Active Substance: ZOLEDRONIC ACID
     Indication: Hormone receptor negative HER2 positive breast cancer
     Dates: start: 2021
  14. ZOLEDRONIC ACID [Suspect]
     Active Substance: ZOLEDRONIC ACID
     Indication: Metastases to lymph nodes
     Dates: start: 2021
  15. PALBOCICLIB [Suspect]
     Active Substance: PALBOCICLIB
     Indication: Metastases to bone
     Dates: start: 20200401
  16. PALBOCICLIB [Suspect]
     Active Substance: PALBOCICLIB
     Indication: Metastases to lymph nodes
     Dates: start: 20200401
  17. PALBOCICLIB [Suspect]
     Active Substance: PALBOCICLIB
     Indication: Metastases to the mediastinum
     Dates: start: 20200401
  18. PALBOCICLIB [Suspect]
     Active Substance: PALBOCICLIB
     Indication: Metastases to lung
     Dates: start: 20200401
  19. PALBOCICLIB [Suspect]
     Active Substance: PALBOCICLIB
     Indication: Invasive ductal breast carcinoma
     Dates: start: 20200401
  20. ZOLEDRONIC ACID [Suspect]
     Active Substance: ZOLEDRONIC ACID
     Indication: Metastases to lung
     Dates: start: 2021
  21. ZOLEDRONIC ACID [Suspect]
     Active Substance: ZOLEDRONIC ACID
     Indication: Metastases to lung
     Dates: start: 2021
  22. ZOLEDRONIC ACID [Suspect]
     Active Substance: ZOLEDRONIC ACID
     Indication: Metastases to the mediastinum
     Dates: start: 2021

REACTIONS (6)
  - Weight decreased [Recovering/Resolving]
  - Renal tubular dysfunction [Recovering/Resolving]
  - Fanconi syndrome [Recovering/Resolving]
  - Renal tubular acidosis [Recovering/Resolving]
  - Acute kidney injury [Recovering/Resolving]
  - Metabolic acidosis [Recovering/Resolving]

NARRATIVE: CASE EVENT DATE: 20220101
